FAERS Safety Report 18827671 (Version 1)
Quarter: 2021Q1

REPORT INFORMATION
  Report Type: Spontaneous
  Country: US (occurrence: US)
  Receive Date: 20210201
  Receipt Date: 20210201
  Transmission Date: 20210419
  Serious: Yes (Other)
  Sender: FDA-Public Use
  Company Number: US-ABBVIE-20K-163-3332857-00

PATIENT
  Age: 43 Year
  Sex: Female

DRUGS (1)
  1. HUMIRA [Suspect]
     Active Substance: ADALIMUMAB
     Indication: HIDRADENITIS
     Route: 058

REACTIONS (7)
  - Maternal exposure during pregnancy [Unknown]
  - Live birth [Unknown]
  - Hidradenitis [Not Recovered/Not Resolved]
  - Weight decreased [Unknown]
  - Hysterectomy [Unknown]
  - Streptococcal sepsis [Unknown]
  - Procedural pain [Unknown]

NARRATIVE: CASE EVENT DATE: 202006
